FAERS Safety Report 16667396 (Version 1)
Quarter: 2019Q3

REPORT INFORMATION
  Report Type: Spontaneous
  Country: US (occurrence: US)
  Receive Date: 20190805
  Receipt Date: 20190805
  Transmission Date: 20191004
  Serious: No
  Sender: FDA-Public Use
  Company Number: US-STRIDES ARCOLAB LIMITED-2019SP006368

PATIENT
  Age: 82 Year
  Sex: Male

DRUGS (8)
  1. INSULIN DETEMIR [Interacting]
     Active Substance: INSULIN DETEMIR
     Dosage: 3 TIMES/DAY WITH MEALS, INSULIN ASPART
     Route: 065
  2. INSULIN DETEMIR [Interacting]
     Active Substance: INSULIN DETEMIR
     Dosage: 32 UNITS ONCE/DAY, INSULIN DETEMIR
     Route: 065
  3. OMEPRAZOLE. [Interacting]
     Active Substance: OMEPRAZOLE
     Indication: HELICOBACTER INFECTION
     Dosage: 20 MG, BID
     Route: 065
  4. INSULIN DETEMIR [Interacting]
     Active Substance: INSULIN DETEMIR
     Dosage: 15 UNITS AT BEDTIME, INSULIN DETEMIR
     Route: 065
  5. CLARITHROMYCIN. [Suspect]
     Active Substance: CLARITHROMYCIN
     Indication: HELICOBACTER INFECTION
     Dosage: 500 MG, BID
     Route: 065
  6. INSULIN DETEMIR [Interacting]
     Active Substance: INSULIN DETEMIR
     Indication: TYPE 2 DIABETES MELLITUS
     Dosage: ONCE/DAY AT BEDTIME, INSULIN DETEMIR
     Route: 065
  7. INSULIN DETEMIR [Interacting]
     Active Substance: INSULIN DETEMIR
     Dosage: 10 UNITS AT BEDTIME, INSULIN DETEMIR
     Route: 065
  8. AMOXICILLIN. [Interacting]
     Active Substance: AMOXICILLIN
     Indication: HELICOBACTER INFECTION
     Dosage: 500 MG, BID
     Route: 065

REACTIONS (5)
  - Tachycardia [Recovered/Resolved]
  - Confusional state [Recovered/Resolved]
  - Hyperhidrosis [Recovered/Resolved]
  - Drug interaction [Recovered/Resolved]
  - Hypoglycaemia [Recovered/Resolved]
